FAERS Safety Report 7294386-0 (Version None)
Quarter: 2011Q1

REPORT INFORMATION
  Report Type: 
  Country: None (occurrence: None)
  Receive Date: 20110215
  Receipt Date: 20110203
  Transmission Date: 20110831
  Serious: Yes (Hospitalization)
  Sender: FDA-Public Use
  Company Number: GR-AMGEN-GRCSP2011007667

PATIENT
  Age: 64 Year
  Sex: Female

DRUGS (2)
  1. METHOTREXATE [Concomitant]
     Indication: RHEUMATOID ARTHRITIS
     Dosage: 10 MG, WEEKLY
     Route: 048
  2. ENBREL [Suspect]
     Indication: RHEUMATOID ARTHRITIS
     Dosage: 50 MG, WEEKLY
     Route: 058
     Dates: start: 20080701, end: 20090701

REACTIONS (7)
  - CELLULITIS [None]
  - ANAEMIA [None]
  - GLOMERULONEPHRITIS [None]
  - LUNG INFILTRATION [None]
  - LUPUS-LIKE SYNDROME [None]
  - PURPURA [None]
  - THROMBOCYTOPENIA [None]
